FAERS Safety Report 6707788-5 (Version None)
Quarter: 2010Q2

REPORT INFORMATION
  Report Type: 
  Country: None (occurrence: None)
  Receive Date: 20100503
  Receipt Date: 20090727
  Transmission Date: 20101027
  Serious: No
  Sender: FDA-Public Use
  Company Number: US-ASTRAZENECA-2009SE07045

PATIENT
  Sex: Female
  Weight: 114.3 kg

DRUGS (5)
  1. NEXIUM [Suspect]
     Indication: GASTROOESOPHAGEAL REFLUX DISEASE
     Route: 048
     Dates: start: 20030101
  2. ATENOLOL [Concomitant]
  3. SUVASTATIN [Concomitant]
  4. ASPIRIN [Concomitant]
  5. KOLAZAPAM [Concomitant]

REACTIONS (2)
  - CLUSTER HEADACHE [None]
  - WEIGHT INCREASED [None]
